FAERS Safety Report 7213486-4 (Version None)
Quarter: 2011Q1

REPORT INFORMATION
  Report Type: 
  Country: None (occurrence: None)
  Receive Date: 20110106
  Receipt Date: 20101223
  Transmission Date: 20110831
  Serious: Yes (Hospitalization)
  Sender: FDA-Public Use
  Company Number: PHHY2010IT88378

PATIENT
  Sex: Female

DRUGS (3)
  1. BETA BLOCKING AGENTS [Concomitant]
     Dosage: UNK
  2. SERTAN [Concomitant]
  3. METFORMIN HYDROCHLORIDE [Suspect]
     Indication: DIABETES MELLITUS
     Dosage: UNK
     Route: 048
     Dates: start: 20000101, end: 20101122

REACTIONS (5)
  - RENAL FAILURE ACUTE [None]
  - LACTIC ACIDOSIS [None]
  - DRUG LEVEL INCREASED [None]
  - BLOOD CREATININE INCREASED [None]
  - COMA [None]
